FAERS Safety Report 23481464 (Version 1)
Quarter: 2024Q1

REPORT INFORMATION
  Report Type: Spontaneous
  Country: US (occurrence: None)
  Receive Date: 20240202
  Receipt Date: 20240202
  Transmission Date: 20240410
  Serious: No
  Sender: FDA-Public Use
  Company Number: None

PATIENT
  Sex: Female

DRUGS (2)
  1. NUCALA [Suspect]
     Active Substance: MEPOLIZUMAB
     Indication: Asthma
     Dosage: OTHER FREQUENCY : ONCE EVERY 28 DAYS;?
     Route: 058
     Dates: start: 202308
  2. TEZSPIRE [Concomitant]
     Active Substance: TEZEPELUMAB-EKKO

REACTIONS (1)
  - Drug ineffective [None]
